FAERS Safety Report 16576647 (Version 1)
Quarter: 2019Q3

REPORT INFORMATION
  Report Type: Spontaneous
  Country: US (occurrence: US)
  Receive Date: 20190715
  Receipt Date: 20190715
  Transmission Date: 20191004
  Serious: Yes (Hospitalization)
  Sender: FDA-Public Use
  Company Number: None

PATIENT
  Age: 74 Year
  Sex: Male
  Weight: 99 kg

DRUGS (1)
  1. MAGNEVIST [Suspect]
     Active Substance: GADOPENTETATE DIMEGLUMINE
     Indication: NUCLEAR MAGNETIC RESONANCE IMAGING

REACTIONS (15)
  - Confusional state [None]
  - Gait inability [None]
  - Hypertension [None]
  - Paraesthesia [None]
  - Malaise [None]
  - Cataract [None]
  - Dizziness [None]
  - Musculoskeletal pain [None]
  - Pain in extremity [None]
  - Headache [None]
  - Joint stiffness [None]
  - Acute kidney injury [None]
  - Neck pain [None]
  - Balance disorder [None]
  - Visual impairment [None]

NARRATIVE: CASE EVENT DATE: 20180904
